FAERS Safety Report 10461845 (Version 1)
Quarter: 2014Q3

REPORT INFORMATION
  Report Type: Spontaneous
  Country: US (occurrence: None)
  Receive Date: 20140916
  Receipt Date: 20140916
  Transmission Date: 20150326
  Serious: Yes (Hospitalization)
  Sender: FDA-Public Use
  Company Number: C-14-116

PATIENT
  Age: 62 Year
  Sex: Male

DRUGS (11)
  1. OXYCODONE [Suspect]
     Active Substance: OXYCODONE
     Indication: PAIN
     Dosage: VARIES, DAYS 1-10
     Route: 048
  2. HEPARIN [Concomitant]
     Active Substance: HEPARIN SODIUM
  3. DOCUSATE [Concomitant]
     Active Substance: DOCUSATE
  4. LORAZEPAM. [Concomitant]
     Active Substance: LORAZEPAM
  5. RANITIDINE [Concomitant]
     Active Substance: RANITIDINE\RANITIDINE HYDROCHLORIDE
  6. ACETAMINOPHEN. [Concomitant]
     Active Substance: ACETAMINOPHEN
  7. CALCIUM-VITAMIN D [Concomitant]
  8. FOLATE AND MULTIVITAMIN [Concomitant]
  9. TRAMADOL [Suspect]
     Active Substance: TRAMADOL
     Indication: PAIN
     Route: 048
  10. THIAMINE [Concomitant]
     Active Substance: THIAMINE
  11. POLYETHYLENE GLUCOL [Concomitant]
     Active Substance: POLYETHYLENE GLYCOLS

REACTIONS (17)
  - Anaemia macrocytic [None]
  - Urinary incontinence [None]
  - Leukocytosis [None]
  - Hyperhidrosis [None]
  - Hallucination, visual [None]
  - Disturbance in attention [None]
  - Drug withdrawal syndrome [None]
  - Clonus [None]
  - Insomnia [None]
  - Dysarthria [None]
  - Disorientation [None]
  - Pain [None]
  - Irritability [None]
  - Serotonin syndrome [None]
  - Confusional state [None]
  - Diarrhoea [None]
  - Mydriasis [None]
